FAERS Safety Report 23970303 (Version 1)
Quarter: 2024Q2

REPORT INFORMATION
  Report Type: Spontaneous
  Country: SE (occurrence: SE)
  Receive Date: 20240613
  Receipt Date: 20240613
  Transmission Date: 20240716
  Serious: Yes (Hospitalization)
  Sender: FDA-Public Use
  Company Number: None

PATIENT

DRUGS (4)
  1. ONCASPAR [Suspect]
     Active Substance: PEGASPARGASE
     Indication: B precursor type acute leukaemia
     Dosage: UNK
     Route: 065
  2. ONCASPAR [Suspect]
     Active Substance: PEGASPARGASE
     Dosage: THIRD DOSE SINCE START OF TREATMENT
     Route: 065
     Dates: start: 20240404
  3. FLAGYL [Concomitant]
     Active Substance: METRONIDAZOLE\METRONIDAZOLE HYDROCHLORIDE
     Indication: Product used for unknown indication
     Dosage: UNK
     Route: 065
  4. MERCAPTOPURINE [Concomitant]
     Active Substance: MERCAPTOPURINE
     Indication: Product used for unknown indication
     Dosage: UNK
     Route: 065
     Dates: start: 20240404

REACTIONS (6)
  - Hypersensitivity [Unknown]
  - Pruritus [Unknown]
  - Diarrhoea [Unknown]
  - Rash [Unknown]
  - Abdominal pain [Unknown]
  - Sensation of foreign body [Unknown]

NARRATIVE: CASE EVENT DATE: 20240401
